FAERS Safety Report 23837284 (Version 4)
Quarter: 2024Q3

REPORT INFORMATION
  Report Type: Spontaneous
  Country: CH (occurrence: CH)
  Receive Date: 20240509
  Receipt Date: 20240701
  Transmission Date: 20241017
  Serious: Yes (Other)
  Sender: ORGANON
  Company Number: CH-ORGANON-O2405CHE000665

PATIENT
  Sex: Female
  Weight: 80 kg

DRUGS (1)
  1. ETONOGESTREL [Suspect]
     Active Substance: ETONOGESTREL
     Dosage: 1 IMPLANT LEFT ARM
     Route: 059
     Dates: start: 20220417

REACTIONS (3)
  - General anaesthesia [Unknown]
  - Device breakage [Not Recovered/Not Resolved]
  - Complication of device removal [Not Recovered/Not Resolved]

NARRATIVE: CASE EVENT DATE: 20240425
